FAERS Safety Report 25206579 (Version 3)
Quarter: 2025Q3

REPORT INFORMATION
  Report Type: Spontaneous
  Country: EU (occurrence: EU)
  Receive Date: 20250417
  Receipt Date: 20250707
  Transmission Date: 20251020
  Serious: Yes (Other)
  Sender: ROCHE
  Company Number: EU-ROCHE-10000257591

PATIENT
  Sex: Male
  Weight: 70 kg

DRUGS (6)
  1. HEMLIBRA [Suspect]
     Active Substance: EMICIZUMAB-KXWH
     Indication: Factor VIII deficiency
     Dosage: 3MG/KG BW EVERY WEEK FOR 4WEEKS,? 1 VIAL OF 150MG AND 1 VIAL OF 60MG?1.4ML SOLUTION TO BE ADMINISTER
     Route: 058
     Dates: start: 202209
  2. HEMLIBRA [Suspect]
     Active Substance: EMICIZUMAB-KXWH
     Dosage: 1.4ML SOLUTION TO BE ADMINISTERED
     Route: 058
  3. EFMOROCTOCOG ALFA [Concomitant]
     Active Substance: EFMOROCTOCOG ALFA
     Dosage: FOR 7 DAYS
  4. EFMOROCTOCOG ALFA [Concomitant]
     Active Substance: EFMOROCTOCOG ALFA
     Dosage: FOR 7 DAYS
  5. EFMOROCTOCOG ALFA [Concomitant]
     Active Substance: EFMOROCTOCOG ALFA
  6. ANTIHEMOPHILIC FACTOR HUMAN [Concomitant]
     Active Substance: ANTIHEMOPHILIC FACTOR HUMAN
     Route: 042

REACTIONS (2)
  - Gingival bleeding [Recovered/Resolved]
  - Femoral neck fracture [Recovered/Resolved]

NARRATIVE: CASE EVENT DATE: 20230801
